FAERS Safety Report 4360517-5 (Version None)
Quarter: 2004Q2

REPORT INFORMATION
  Report Type: 
  Country: None (occurrence: None)
  Receive Date: 20040513
  Receipt Date: 20040504
  Transmission Date: 20050107
  Serious: Yes (Other)
  Sender: FDA-Public Use
  Company Number: TUK2004A00048

PATIENT
  Age: 44 Year
  Sex: Female

DRUGS (4)
  1. ACTOS [Suspect]
     Indication: DIABETES MELLITUS
     Dosage: 15 MG, ORAL
     Route: 048
     Dates: start: 20040216, end: 20040401
  2. METFORMIN HCL [Concomitant]
  3. GLIMEPIRIDE [Concomitant]
  4. SIMVASTATIN [Concomitant]

REACTIONS (1)
  - ARTHRALGIA [None]
